FAERS Safety Report 4424837-8 (Version None)
Quarter: 2004Q3

REPORT INFORMATION
  Report Type: 
  Country: None (occurrence: None)
  Receive Date: 20040809
  Receipt Date: 20040728
  Transmission Date: 20050211
  Serious: Yes (Other)
  Sender: FDA-Public Use
  Company Number: FR-JNJFOC-20040705089

PATIENT
  Age: 30 Year
  Sex: Female

DRUGS (4)
  1. REMICADE [Suspect]
     Indication: CROHN'S DISEASE
     Dosage: SEE IMAGE, INTRAVENOUS
     Route: 042
     Dates: start: 20040120, end: 20040120
  2. REMICADE [Suspect]
     Indication: CROHN'S DISEASE
     Dosage: SEE IMAGE, INTRAVENOUS
     Route: 042
     Dates: start: 20040202, end: 20040202
  3. REMICADE [Suspect]
     Indication: CROHN'S DISEASE
     Dosage: SEE IMAGE, INTRAVENOUS
     Route: 042
     Dates: start: 20040302, end: 20040302
  4. REMICADE [Suspect]
     Indication: CROHN'S DISEASE
     Dosage: SEE IMAGE, INTRAVENOUS
     Route: 042
     Dates: start: 20040624, end: 20040624

REACTIONS (2)
  - ANAPHYLACTIC SHOCK [None]
  - INFUSION RELATED REACTION [None]
